FAERS Safety Report 8221617 (Version 2)
Quarter: 2015Q2

REPORT INFORMATION
  Report Type: Spontaneous
  Country: US (occurrence: US)
  Receive Date: 20111102
  Receipt Date: 20150626
  Transmission Date: 20150821
  Serious: Yes (Life-Threatening, Hospitalization)
  Sender: FDA-Public Use
  Company Number: US-ASTRAZENECA-2011SE42816

PATIENT
  Age: 22852 Day
  Sex: Male

DRUGS (3)
  1. FENTYNAL [Concomitant]
     Active Substance: FENTANYL
     Indication: PAIN
     Route: 050
  2. MINOCIN [Concomitant]
     Active Substance: MINOCYCLINE HYDROCHLORIDE
     Indication: RASH
     Route: 048
  3. CAPRELSA [Suspect]
     Active Substance: VANDETANIB
     Indication: THYROID CANCER
     Route: 048
     Dates: start: 20110707

REACTIONS (3)
  - Septic shock [Recovering/Resolving]
  - Blood urine present [Recovered/Resolved]
  - Rash [Recovering/Resolving]

NARRATIVE: CASE EVENT DATE: 20110714
